FAERS Safety Report 18960853 (Version 1)
Quarter: 2021Q1

REPORT INFORMATION
  Report Type: Spontaneous
  Country: GB (occurrence: GB)
  Receive Date: 20210303
  Receipt Date: 20210303
  Transmission Date: 20210420
  Serious: Yes (Other)
  Sender: FDA-Public Use
  Company Number: GB-DRREDDYS-GER/UKI/21/0132401

PATIENT
  Age: 25 Year
  Sex: Female
  Weight: 103.86 kg

DRUGS (1)
  1. FLUOXETINE [Suspect]
     Active Substance: FLUOXETINE HYDROCHLORIDE
     Indication: ANXIETY
     Dosage: 20MG
     Route: 048
     Dates: start: 20200812, end: 20201117

REACTIONS (4)
  - Ulcer [Recovered/Resolved]
  - Odynophagia [Recovered/Resolved]
  - Gingival pain [Recovered/Resolved]
  - Dry mouth [Recovered/Resolved]

NARRATIVE: CASE EVENT DATE: 20200905
